FAERS Safety Report 4581019-7 (Version None)
Quarter: 2005Q1

REPORT INFORMATION
  Report Type: 
  Country: None (occurrence: None)
  Receive Date: 20050214
  Receipt Date: 20040719
  Transmission Date: 20050727
  Serious: Yes (Disabling, Other)
  Sender: FDA-Public Use
  Company Number: US-GLAXOSMITHKLINE-A0518829A

PATIENT
  Age: 51 Year
  Sex: Female

DRUGS (4)
  1. LAMICTAL [Suspect]
     Indication: BIPOLAR II DISORDER
     Dosage: 25MG ALTERNATE DAYS
     Route: 048
     Dates: start: 20040603, end: 20040613
  2. EFFEXOR XR [Concomitant]
     Indication: ANXIETY
     Dosage: 37.5MG TWICE PER DAY
     Route: 048
     Dates: start: 20010101, end: 20040613
  3. DEPAKOTE [Concomitant]
     Indication: BIPOLAR II DISORDER
     Dosage: 750MG AT NIGHT
     Route: 048
     Dates: start: 19930101
  4. NEURONTIN [Concomitant]
     Indication: ANXIETY
     Dosage: 300MG AT NIGHT
     Route: 048
     Dates: start: 20020101, end: 20040613

REACTIONS (8)
  - AFFECT LABILITY [None]
  - ANXIETY [None]
  - ARTHRALGIA [None]
  - FATIGUE [None]
  - HYPOMANIA [None]
  - INSOMNIA [None]
  - PRURITUS [None]
  - RASH [None]
